FAERS Safety Report 6055224-7 (Version None)
Quarter: 2009Q1

REPORT INFORMATION
  Report Type: 
  Country: None (occurrence: None)
  Receive Date: 20090123
  Receipt Date: 20090111
  Transmission Date: 20090719
  Serious: Yes (Death, Other)
  Sender: FDA-Public Use
  Company Number: 144044

PATIENT
  Age: 46 Year

DRUGS (11)
  1. VINCRISTINE SULFATE [Suspect]
     Indication: HODGKIN'S DISEASE
  2. MECHLORETHAMINE [Suspect]
     Indication: HODGKIN'S DISEASE
  3. PROCARBAZINE [Suspect]
     Indication: HODGKIN'S DISEASE
  4. PREDNISONE [Suspect]
     Indication: HODGKIN'S DISEASE
  5. DOXORUBICIN HCL [Suspect]
     Indication: HODGKIN'S DISEASE
  6. BLEOMYCIN SULFATE [Suspect]
     Indication: HODGKIN'S DISEASE
  7. DACARBAZINE [Suspect]
     Indication: HODGKIN'S DISEASE
  8. THERAPEUTIC RADIOPHARMACEUTICALS [Suspect]
     Indication: HODGKIN'S DISEASE
     Dosage: MEDIATINUM AND NECK 30.6 GY; NECK BOSSY 10.8 GY
  9. CARMUSTINE [Suspect]
     Indication: HODGKIN'S DISEASE
  10. ETOPOSIDE [Suspect]
     Indication: HODGKIN'S DISEASE
  11. CYCLOPHOSPHAMIDE [Suspect]
     Indication: HODGKIN'S DISEASE

REACTIONS (2)
  - ACUTE MYELOID LEUKAEMIA [None]
  - MYELODYSPLASTIC SYNDROME [None]
